FAERS Safety Report 8593658-7 (Version None)
Quarter: 2012Q3

REPORT INFORMATION
  Report Type: 
  Country: None (occurrence: None)
  Receive Date: 20120814
  Receipt Date: 20120808
  Transmission Date: 20120928
  Serious: Yes (Other)
  Sender: FDA-Public Use
  Company Number: JP-VERTEX PHARMACEUTICALS INC.-AE-2012-008090

PATIENT
  Age: 27 Year
  Sex: Male

DRUGS (7)
  1. TELAVIC [Suspect]
     Indication: HEPATITIS C
     Route: 048
     Dates: start: 20120214, end: 20120219
  2. REBETOL [Concomitant]
     Route: 048
     Dates: start: 20120307, end: 20120430
  3. REBETOL [Concomitant]
     Route: 048
     Dates: start: 20120501, end: 20120730
  4. TELAVIC [Suspect]
     Route: 048
     Dates: start: 20120220, end: 20120508
  5. REBETOL [Concomitant]
     Indication: HEPATITIS C
     Route: 048
     Dates: start: 20120214, end: 20120306
  6. PEGINTERFERON ALFA-2A [Concomitant]
     Indication: HEPATITIS C
     Route: 058
     Dates: start: 20120214, end: 20120724
  7. CONFATANIN [Concomitant]
     Route: 048
     Dates: start: 20120213

REACTIONS (4)
  - RASH [None]
  - PSYCHOSOMATIC DISEASE [None]
  - HYPERURICAEMIA [None]
  - HAEMOGLOBIN DECREASED [None]
